FAERS Safety Report 22257564 (Version 2)
Quarter: 2023Q2

REPORT INFORMATION
  Report Type: Spontaneous
  Country: AU (occurrence: AU)
  Receive Date: 20230427
  Receipt Date: 20230505
  Transmission Date: 20230721
  Serious: Yes (Life-Threatening, Hospitalization, Other)
  Sender: FDA-Public Use
  Company Number: AU-GENERIC HEALTH PTY. LTD.-2023-03004

PATIENT

DRUGS (2)
  1. TRAMADOL HYDROCHLORIDE [Suspect]
     Active Substance: TRAMADOL HYDROCHLORIDE
     Indication: Product used for unknown indication
     Dosage: UNK
     Route: 065
  2. TEMAZEPAM [Suspect]
     Active Substance: TEMAZEPAM
     Indication: Product used for unknown indication
     Dosage: UNK
     Route: 065

REACTIONS (9)
  - Ischaemic cerebral infarction [Unknown]
  - Unresponsive to stimuli [Unknown]
  - Leukoencephalopathy [Recovering/Resolving]
  - Hypoxia [Recovering/Resolving]
  - Hypotension [Unknown]
  - Intentional overdose [Unknown]
  - Mood altered [Unknown]
  - Cognitive disorder [Unknown]
  - Depressed level of consciousness [Unknown]
